FAERS Safety Report 4943341-1 (Version None)
Quarter: 2006Q1

REPORT INFORMATION
  Report Type: 
  Country: None (occurrence: None)
  Receive Date: 20060314
  Receipt Date: 20060103
  Transmission Date: 20060701
  Serious: Yes (Death)
  Sender: FDA-Public Use
  Company Number: KR-SANOFI-SYNTHELABO-F01200600013

PATIENT
  Sex: Male
  Weight: 92 kg

DRUGS (11)
  1. ELOXATIN [Suspect]
     Indication: PANCREATIC CARCINOMA METASTATIC
     Route: 042
     Dates: start: 20051213, end: 20051213
  2. GEMCITABINE [Suspect]
     Route: 042
     Dates: start: 20051212, end: 20051212
  3. FENTANYL CITRATE [Concomitant]
     Indication: PAIN
     Dosage: 50 MCG/HR
     Route: 062
     Dates: start: 20051125, end: 20060102
  4. METOCLOPRAMIDE [Concomitant]
     Indication: DYSPEPSIA
     Dosage: 10 MG
     Route: 042
     Dates: start: 20051227, end: 20060102
  5. KAVIBEN PERI [Concomitant]
     Indication: MALNUTRITION
     Dosage: 2000 ML
     Route: 042
     Dates: start: 20051227, end: 20060102
  6. ULTRACET [Concomitant]
     Indication: PAIN
     Dosage: 6 DF
     Route: 048
     Dates: start: 20051125, end: 20060102
  7. OXYCODONE [Concomitant]
     Indication: PAIN
     Dosage: 120 MG
     Route: 048
     Dates: start: 20051125, end: 20060102
  8. ITOPRIDE HYDROCHLORIDE [Concomitant]
     Indication: DYSPEPSIA
     Dosage: 150 MG
     Route: 048
     Dates: start: 20051125, end: 20060102
  9. DULCOLAX [Concomitant]
     Indication: CONSTIPATION
     Dosage: 1 DF
     Route: 048
     Dates: start: 20051201, end: 20060102
  10. DOXAZOSIN [Concomitant]
     Indication: BENIGN PROSTATIC HYPERPLASIA
     Dosage: 4 MG
     Route: 048
     Dates: start: 20051213, end: 20060102
  11. MEGESTROL ACETATE [Concomitant]
     Indication: ANOREXIA
     Dosage: 40 MG
     Route: 048
     Dates: start: 20051227, end: 20060102

REACTIONS (7)
  - BRONCHOPNEUMONIA [None]
  - CARDIAC ARREST [None]
  - CIRCULATORY COLLAPSE [None]
  - HYPERALBUMINAEMIA [None]
  - PEPTOSTREPTOCOCCUS INFECTION [None]
  - PULMONARY OEDEMA [None]
  - SEPSIS [None]
